FAERS Safety Report 4793816-3 (Version None)
Quarter: 2005Q4

REPORT INFORMATION
  Report Type: 
  Country: None (occurrence: None)
  Receive Date: 20051006
  Receipt Date: 20051006
  Transmission Date: 20060501
  Serious: Yes (Hospitalization)
  Sender: FDA-Public Use
  Company Number: None

PATIENT
  Age: 76 Year
  Sex: Male

DRUGS (1)
  1. AMIODARONE    200MG [Suspect]
     Indication: ATRIAL FIBRILLATION
     Dosage: 200MG   BID   PO
     Route: 048
     Dates: start: 20050301, end: 20050622

REACTIONS (4)
  - COGNITIVE DETERIORATION [None]
  - COGWHEEL RIGIDITY [None]
  - EXTRAPYRAMIDAL DISORDER [None]
  - GAIT DISTURBANCE [None]
